FAERS Safety Report 14707989 (Version 2)
Quarter: 2018Q2

REPORT INFORMATION
  Report Type: Spontaneous
  Country: US (occurrence: US)
  Receive Date: 20180403
  Receipt Date: 20180410
  Transmission Date: 20180711
  Serious: No
  Sender: FDA-Public Use
  Company Number: US-PFIZER INC-2018132260

PATIENT
  Age: 15 Year
  Sex: Male

DRUGS (1)
  1. GENOTROPIN [Suspect]
     Active Substance: SOMATROPIN
     Dosage: 2 MG, 1X/DAY, AT NIGHT
     Route: 058

REACTIONS (6)
  - Malaise [Unknown]
  - Pyrexia [Unknown]
  - Headache [Unknown]
  - Hypersensitivity [Unknown]
  - Intentional dose omission [Unknown]
  - Viral infection [Unknown]
